FAERS Safety Report 17951032 (Version 1)
Quarter: 2020Q2

REPORT INFORMATION
  Report Type: Spontaneous
  Country: HU (occurrence: HU)
  Receive Date: 20200626
  Receipt Date: 20200626
  Transmission Date: 20200714
  Serious: Yes (Other)
  Sender: FDA-Public Use
  Company Number: HU-ALLERGAN-2024274US

PATIENT
  Sex: Male

DRUGS (3)
  1. MESALAZINE UNK [Suspect]
     Active Substance: MESALAMINE
     Dosage: 500 MG, Q8HR
     Route: 048
     Dates: start: 2019, end: 2020
  2. MESALAZINE UNK [Suspect]
     Active Substance: MESALAMINE
     Indication: CROHN^S DISEASE
     Dosage: 500 MG, Q8HR
     Route: 048
     Dates: start: 20200528, end: 20200529
  3. MESALAZINE UNK [Suspect]
     Active Substance: MESALAMINE
     Dosage: 1000 MG, Q8HR
     Route: 048
     Dates: start: 2004, end: 2019

REACTIONS (9)
  - Dyspnoea [Unknown]
  - Frequent bowel movements [Not Recovered/Not Resolved]
  - Oropharyngeal pain [Not Recovered/Not Resolved]
  - Arthralgia [Not Recovered/Not Resolved]
  - Spinal pain [Not Recovered/Not Resolved]
  - Haemoptysis [Unknown]
  - Dysphagia [Unknown]
  - Tendon pain [Not Recovered/Not Resolved]
  - Abdominal pain [Not Recovered/Not Resolved]

NARRATIVE: CASE EVENT DATE: 20200529
